FAERS Safety Report 9848966 (Version 2)
Quarter: 2014Q2

REPORT INFORMATION
  Report Type: Spontaneous
  Country: IT (occurrence: IT)
  Receive Date: 20140128
  Receipt Date: 20140522
  Transmission Date: 20141212
  Serious: Yes (Life-Threatening, Hospitalization)
  Sender: FDA-Public Use
  Company Number: IT-MYLANLABS-2014S1001165

PATIENT
  Age: 52 Year
  Sex: Female

DRUGS (5)
  1. METFORMIN [Suspect]
     Dosage: 40 G TOTAL
     Route: 048
     Dates: start: 20140102, end: 20140102
  2. MINIAS [Suspect]
     Dosage: 40 GTT TOTAL
     Route: 048
     Dates: start: 20140102, end: 20140102
  3. EN [Suspect]
     Dosage: 40 GTT TOTAL
     Route: 048
     Dates: start: 20140102, end: 20140102
  4. DEURSIL [Concomitant]
     Indication: PRODUCT USED FOR UNKNOWN INDICATION
     Route: 048
  5. LUCEN /01479302/ [Concomitant]
     Indication: PRODUCT USED FOR UNKNOWN INDICATION

REACTIONS (8)
  - Bradycardia [Recovering/Resolving]
  - Hypoglycaemia [Recovering/Resolving]
  - Hypotension [Recovering/Resolving]
  - Lactic acidosis [Recovering/Resolving]
  - Renal failure acute [Recovering/Resolving]
  - Suicide attempt [Recovering/Resolving]
  - Drug abuse [Recovering/Resolving]
  - Anger [Recovering/Resolving]
